FAERS Safety Report 24386529 (Version 1)
Quarter: 2024Q4

REPORT INFORMATION
  Report Type: Spontaneous
  Country: GB (occurrence: GB)
  Receive Date: 20241002
  Receipt Date: 20241002
  Transmission Date: 20250115
  Serious: Yes (Other)
  Sender: ROCHE
  Company Number: GB-ROCHE-10000091404

PATIENT

DRUGS (3)
  1. BEVACIZUMAB [Suspect]
     Active Substance: BEVACIZUMAB
     Indication: Diabetic retinal oedema
     Route: 065
  2. RANIBIZUMAB [Suspect]
     Active Substance: RANIBIZUMAB
     Indication: Diabetic retinal oedema
     Route: 065
  3. AFLIBERCEPT [Suspect]
     Active Substance: AFLIBERCEPT
     Indication: Diabetic retinal oedema
     Route: 065

REACTIONS (3)
  - Hypertension [Unknown]
  - Embolism arterial [Unknown]
  - Off label use [Unknown]
